FAERS Safety Report 24814192 (Version 1)
Quarter: 2025Q1

REPORT INFORMATION
  Report Type: Spontaneous
  Country: IN (occurrence: IN)
  Receive Date: 20250107
  Receipt Date: 20250107
  Transmission Date: 20250409
  Serious: Yes (Other)
  Sender: NOVARTIS
  Company Number: IN-SANDOZ-SDZ2025IN000314

PATIENT
  Sex: Female

DRUGS (2)
  1. TACROLIMUS [Suspect]
     Active Substance: TACROLIMUS
     Indication: Renal transplant
     Dosage: 4 MG, QD (2 MG, BID)
     Route: 048
  2. MYFORTIC [Suspect]
     Active Substance: MYCOPHENOLATE SODIUM
     Indication: Renal transplant
     Dosage: 720 MG, QD (360 MG, BID)
     Route: 048

REACTIONS (11)
  - Hypothyroidism [Unknown]
  - Axonal and demyelinating polyneuropathy [Unknown]
  - New onset diabetes after transplantation [Unknown]
  - Gait disturbance [Unknown]
  - Pyrexia [Unknown]
  - Decreased appetite [Unknown]
  - Dyspnoea [Unknown]
  - Back pain [Unknown]
  - Weight increased [Unknown]
  - Hypertension [Unknown]
  - Product prescribing issue [Unknown]

NARRATIVE: CASE EVENT DATE: 20240101
